FAERS Safety Report 7628743-7 (Version None)
Quarter: 2011Q3

REPORT INFORMATION
  Report Type: 
  Country: None (occurrence: None)
  Receive Date: 20110714
  Receipt Date: 20110707
  Transmission Date: 20111222
  Serious: Yes (Other)
  Sender: FDA-Public Use
  Company Number: 2011SP031807

PATIENT
  Sex: Female

DRUGS (3)
  1. REMERON [Suspect]
     Indication: DEPRESSION
     Dosage: 45,30 MG, QD, PO
     Route: 048
     Dates: start: 20100601, end: 20110705
  2. REMERON [Suspect]
     Indication: DEPRESSION
     Dosage: 45,30 MG, QD, PO
     Route: 048
     Dates: start: 20110706
  3. ABILIFY [Suspect]
     Indication: PRODUCT USED FOR UNKNOWN INDICATION
     Dosage: 2 MG, QD, PO
     Route: 048
     Dates: start: 20110401, end: 20110601

REACTIONS (1)
  - TARDIVE DYSKINESIA [None]
